FAERS Safety Report 10512814 (Version 3)
Quarter: 2015Q1

REPORT INFORMATION
  Report Type: Spontaneous
  Country: JP (occurrence: JP)
  Receive Date: 20141013
  Receipt Date: 20150120
  Transmission Date: 20150720
  Serious: Yes (Hospitalization)
  Sender: FDA-Public Use
  Company Number: JP-ROCHE-1462561

PATIENT
  Age: 20 Year
  Sex: Female
  Weight: 47 kg

DRUGS (10)
  1. PREDNISOLONE. [Concomitant]
     Active Substance: PREDNISOLONE
     Indication: POLYCHONDRITIS
     Dosage: DOSAGE IS UNCERTAIN.
     Route: 065
     Dates: start: 2012, end: 2013
  2. NOVAMIN (JAPAN) [Concomitant]
     Indication: PROPHYLAXIS
     Route: 065
     Dates: start: 20140107, end: 20140127
  3. PREDNISOLONE. [Concomitant]
     Active Substance: PREDNISOLONE
     Indication: POLYCHONDRITIS
     Route: 065
     Dates: start: 20130511, end: 20140210
  4. PREDNISOLONE. [Concomitant]
     Active Substance: PREDNISOLONE
     Indication: POLYCHONDRITIS
     Route: 065
     Dates: start: 20140211
  5. CELECOX [Concomitant]
     Active Substance: CELECOXIB
     Indication: POLYCHONDRITIS
     Route: 065
     Dates: start: 20120918
  6. TRAMCET [Concomitant]
     Active Substance: ACETAMINOPHEN\TRAMADOL
     Indication: POLYCHONDRITIS
     Route: 048
     Dates: start: 20140107, end: 20140127
  7. ACTEMRA [Suspect]
     Active Substance: TOCILIZUMAB
     Indication: POLYCHONDRITIS
     Route: 042
     Dates: start: 20140107, end: 20140207
  8. METOLATE [Concomitant]
     Active Substance: METHOTREXATE
     Indication: POLYCHONDRITIS
     Route: 065
     Dates: start: 20130729, end: 20140207
  9. FOLIAMIN [Concomitant]
     Active Substance: FOLIC ACID
     Indication: PROPHYLAXIS
     Route: 065
     Dates: start: 20130729, end: 20140310
  10. METHOTREXATE [Concomitant]
     Active Substance: METHOTREXATE
     Dosage: DOSAGE IS UNCERTAIN.
     Route: 065

REACTIONS (6)
  - Pyrexia [Unknown]
  - Chondritis [Unknown]
  - Arthritis [Unknown]
  - Costochondritis [Unknown]
  - Off label use [Unknown]
  - Polychondritis [Recovering/Resolving]

NARRATIVE: CASE EVENT DATE: 20140127
